FAERS Safety Report 6725136-1 (Version None)
Quarter: 2010Q2

REPORT INFORMATION
  Report Type: 
  Country: None (occurrence: None)
  Receive Date: 20100513
  Receipt Date: 20100513
  Transmission Date: 20101027
  Serious: Yes (Disabling, Other)
  Sender: FDA-Public Use
  Company Number: None

PATIENT
  Age: 51 Month
  Sex: Male
  Weight: 70.7611 kg

DRUGS (2)
  1. CIPROFLOXACIN HCL [Suspect]
     Indication: EAR INFECTION
     Dosage: 20 TWICE A DAY PO
     Route: 048
     Dates: start: 20100506, end: 20100510
  2. CIPROFLOXOXACIN [Concomitant]

REACTIONS (3)
  - ABASIA [None]
  - IMPAIRED WORK ABILITY [None]
  - TENDON INJURY [None]
